FAERS Safety Report 10480121 (Version 1)
Quarter: 2014Q3

REPORT INFORMATION
  Report Type: Report from Study
  Country: US (occurrence: US)
  Receive Date: 20140929
  Receipt Date: 20140929
  Transmission Date: 20150326
  Serious: Yes (Other)
  Sender: FDA-Public Use
  Company Number: US-BIOGENIDEC-2014BI097817

PATIENT
  Sex: Female

DRUGS (1)
  1. AVONEX [Suspect]
     Active Substance: INTERFERON BETA-1A
     Indication: MULTIPLE SCLEROSIS
     Route: 030
     Dates: start: 20071025

REACTIONS (5)
  - Multiple sclerosis relapse [Unknown]
  - Malaise [Unknown]
  - Influenza like illness [Unknown]
  - Anti-interferon antibody positive [Unknown]
  - Injury [Unknown]
